FAERS Safety Report 9394765 (Version 1)
Quarter: 2013Q3

REPORT INFORMATION
  Report Type: Spontaneous
  Country: BD (occurrence: BD)
  Receive Date: 20130711
  Receipt Date: 20130711
  Transmission Date: 20140515
  Serious: Yes (Other)
  Sender: FDA-Public Use
  Company Number: PHHY2013BD072842

PATIENT
  Age: 45 Year
  Sex: Male
  Weight: 65 kg

DRUGS (6)
  1. CLOFAZIMINE [Suspect]
     Indication: TYPE 2 LEPRA REACTION
     Dosage: 100 MG, TID FOR 3 MONTHS
  2. CLOFAZIMINE [Suspect]
     Dosage: 100 MG, BID FOR 3 MONTHS
  3. CLOFAZIMINE [Suspect]
     Dosage: 100 MG, QD FOR 3 TO 6 MONTHS
  4. PREDNISOLONE [Suspect]
     Indication: TYPE 2 LEPRA REACTION
     Dosage: 20 MG, UNK
     Route: 048
  5. PREDNISOLONE [Suspect]
     Dosage: UNK UKN, UNK
     Route: 048
  6. METHOTREXATE [Concomitant]
     Indication: TYPE 2 LEPRA REACTION
     Dosage: 2.5 MG, UNK

REACTIONS (8)
  - Swelling face [Unknown]
  - Weight increased [Unknown]
  - Pigmentation disorder [Unknown]
  - Infection [Unknown]
  - Acarodermatitis [Unknown]
  - Skin striae [Unknown]
  - Abdominal pain [Unknown]
  - Type 2 lepra reaction [Recovering/Resolving]
